FAERS Safety Report 8865394 (Version 1)
Quarter: 2012Q4

REPORT INFORMATION
  Report Type: 
  Country: US (occurrence: US)
  Receive Date: 20121024
  Receipt Date: 20121024
  Transmission Date: 20130627
  Serious: No
  Sender: FDA-Public Use
  Company Number: US-AMGEN-USASP2012002912

PATIENT
  Age: 57 Year
  Sex: Female

DRUGS (22)
  1. ENBREL [Suspect]
     Indication: PRODUCT USED FOR UNKNOWN INDICATION
     Dosage: 50 mg, qwk
     Route: 058
  2. CYMBALTA [Concomitant]
     Dosage: 20 mg, UNK
  3. SINGULAIR [Concomitant]
     Dosage: 10 mg, UNK
  4. ANTIVERT                           /00007101/ [Concomitant]
     Dosage: 12.5 mg, UNK
  5. ZYRTEC [Concomitant]
     Dosage: 5 mg, UNK
  6. SUMATRIPTAN [Concomitant]
     Dosage: 25 mg, UNK
  7. TRAZODONE [Concomitant]
     Dosage: 50 mg, UNK
  8. INDOMETHACIN                       /00003801/ [Concomitant]
     Dosage: 25 mg, UNK
  9. TIZANIDINE [Concomitant]
     Dosage: 2 mg, UNK
  10. OMEPRAZOLE [Concomitant]
     Dosage: 10 mg, UNK
  11. SIMVASTATIN [Concomitant]
     Dosage: 5 mg, UNK
  12. FOLIC ACID [Concomitant]
     Dosage: 1 mg, UNK
  13. ALBUTEROL                          /00139501/ [Concomitant]
     Dosage: 90 mug, UNK
  14. CEFTIN [Concomitant]
     Dosage: 250 mg, UNK
  15. OXYBUTYNIN [Concomitant]
     Dosage: 5 mg, UNK
  16. SYMBICORT [Concomitant]
  17. AMITRIPTYLIN [Concomitant]
     Dosage: 25 mg, UNK
  18. ARISTOCORT                         /00031901/ [Concomitant]
     Dosage: 0.1 %, UNK
  19. COMBIVENT [Concomitant]
  20. FISH OIL [Concomitant]
  21. VITAMIN D3 [Concomitant]
  22. METHOTREXATE [Concomitant]
     Dosage: 1 g, UNK

REACTIONS (1)
  - Sinusitis [Unknown]
